FAERS Safety Report 16025188 (Version 1)
Quarter: 2019Q1

REPORT INFORMATION
  Report Type: Spontaneous
  Country: US (occurrence: US)
  Receive Date: 20190301
  Receipt Date: 20190301
  Transmission Date: 20190418
  Serious: No
  Sender: FDA-Public Use
  Company Number: US-SA-2019SA056880

PATIENT
  Age: 46 Year
  Sex: Female

DRUGS (15)
  1. VITAMIN D3 [Concomitant]
     Active Substance: CHOLECALCIFEROL
  2. MOMETASONE FUROATE. [Concomitant]
     Active Substance: MOMETASONE FUROATE
  3. TRIDESILON [Concomitant]
     Active Substance: ACETIC ACID\DESONIDE
  4. HYLATOPICPLUS [Concomitant]
     Active Substance: EMOLLIENTS
  5. ZYRTEC [LEVOCABASTINE HYDROCHLORIDE] [Concomitant]
  6. VITAMIN E [Concomitant]
     Active Substance: .ALPHA.-TOCOPHEROL
  7. AMLODIPINE BESYLATE. [Concomitant]
     Active Substance: AMLODIPINE BESYLATE
  8. DUPIXENT [Suspect]
     Active Substance: DUPILUMAB
     Indication: DERMATITIS ATOPIC
     Dosage: 300 MG, QOW
     Route: 058
  9. LOSARTAN AND HYDROCHLOROTHIAZIDE [Concomitant]
     Active Substance: HYDROCHLOROTHIAZIDE\LOSARTAN POTASSIUM
  10. FISH OIL [Concomitant]
     Active Substance: FISH OIL
  11. TRIAMCINOLONE ACETONIDE. [Concomitant]
     Active Substance: TRIAMCINOLONE ACETONIDE
  12. VISINE [TETRYZOLINE HYDROCHLORIDE] [Concomitant]
  13. ELOCON [Concomitant]
     Active Substance: MOMETASONE FUROATE
  14. MAGNESIUM [Concomitant]
     Active Substance: MAGNESIUM
  15. PROBIOTIC [BIFIDOBACTERIUM LACTIS] [Concomitant]

REACTIONS (1)
  - Rash [Unknown]
